FAERS Safety Report 5905444-4 (Version None)
Quarter: 2008Q4

REPORT INFORMATION
  Report Type: 
  Country: None (occurrence: None)
  Receive Date: 20081001
  Receipt Date: 20081001
  Transmission Date: 20090506
  Serious: No
  Sender: FDA-Public Use
  Company Number: None

PATIENT
  Sex: Female
  Weight: 61.2356 kg

DRUGS (1)
  1. ALDARA [Suspect]
     Indication: ANOGENITAL WARTS
     Dosage: LOCALLY TO WARTS 3 X'S WEEKLY DERMALLY
     Dates: start: 20080911, end: 20080923

REACTIONS (2)
  - APPLICATION SITE VESICLES [None]
  - LYMPH NODE PAIN [None]
